FAERS Safety Report 19801541 (Version 3)
Quarter: 2021Q3

REPORT INFORMATION
  Report Type: Spontaneous
  Country: US (occurrence: US)
  Receive Date: 20210908
  Receipt Date: 20210921
  Transmission Date: 20211014
  Serious: Yes (Other)
  Sender: FDA-Public Use
  Company Number: NVSC2021US199897

PATIENT
  Sex: Male

DRUGS (1)
  1. PREDNISONE. [Suspect]
     Active Substance: PREDNISONE
     Indication: SARCOIDOSIS
     Dosage: UNK
     Route: 065
     Dates: start: 2010

REACTIONS (8)
  - Cardiac failure congestive [Unknown]
  - Aortic valve disease [Recovered/Resolved with Sequelae]
  - Cough [Unknown]
  - Aggression [Recovered/Resolved]
  - Fluid overload [Unknown]
  - Circulatory collapse [Recovered/Resolved]
  - Dyspepsia [Unknown]
  - Weight decreased [Recovered/Resolved]
